FAERS Safety Report 10648822 (Version 1)
Quarter: 2014Q4

REPORT INFORMATION
  Report Type: Spontaneous
  Country: IN (occurrence: None)
  Receive Date: 20141210
  Receipt Date: 20141210
  Transmission Date: 20150529
  Serious: Yes (Hospitalization, Other)
  Sender: FDA-Public Use
  Company Number: FK201405892

PATIENT
  Age: 3 Month
  Sex: Male
  Weight: 3.8 kg

DRUGS (1)
  1. VALPROATE SODIUM. [Suspect]
     Active Substance: VALPROATE SODIUM
     Indication: EPILEPSY
     Dosage: 800MG, 1 IN 1 D, I.U.

REACTIONS (13)
  - Hypospadias [None]
  - Atrial septal defect [None]
  - Ventricular septal defect [None]
  - Maternal drugs affecting foetus [None]
  - Patent ductus arteriosus [None]
  - Pulmonary hypertension [None]
  - Foetal anticonvulsant syndrome [None]
  - Dyspnoea [None]
  - Heart disease congenital [None]
  - Failure to thrive [None]
  - Cardiac failure congestive [None]
  - Dysmorphism [None]
  - Pyrexia [None]
